FAERS Safety Report 8902739 (Version 1)
Quarter: 2012Q4

REPORT INFORMATION
  Report Type: 
  Country: ES (occurrence: ES)
  Receive Date: 20121112
  Receipt Date: 20121112
  Transmission Date: 20130627
  Serious: Yes (Other)
  Sender: FDA-Public Use
  Company Number: ES-JNJFOC-20121102320

PATIENT
  Age: 61 Year
  Sex: Female

DRUGS (1)
  1. DUROGESIC [Suspect]
     Indication: PRODUCT USED FOR UNKNOWN INDICATION
     Route: 062
     Dates: start: 2012

REACTIONS (6)
  - Drug withdrawal syndrome [Unknown]
  - Application site haematoma [Unknown]
  - Medication error [Unknown]
  - Product quality issue [Unknown]
  - Discomfort [Unknown]
  - Malaise [Unknown]
